FAERS Safety Report 7279251-7 (Version None)
Quarter: 2011Q1

REPORT INFORMATION
  Report Type: 
  Country: None (occurrence: None)
  Receive Date: 20110207
  Receipt Date: 20110201
  Transmission Date: 20110831
  Serious: Yes (Other)
  Sender: FDA-Public Use
  Company Number: US-PFIZER INC-2011023577

PATIENT
  Sex: Female
  Weight: 60.317 kg

DRUGS (15)
  1. LISINOPRIL [Concomitant]
     Dosage: 20 MG, UNK
  2. AMBIEN [Concomitant]
     Dosage: 5 MG, UNK
  3. CLONAZEPAM [Concomitant]
     Dosage: 0.25 MG, UNK
  4. AMLODIPINE [Concomitant]
     Dosage: 5 MG, UNK
  5. LOPRESSOR [Concomitant]
     Dosage: 25 MG, UNK
  6. PROMETHAZINE [Concomitant]
     Indication: NAUSEA
     Dosage: UNK, AS NEEDED
  7. ZYVOX [Suspect]
     Indication: STAPHYLOCOCCAL INFECTION
     Dosage: 600 MG, 2X/DAY
     Route: 048
     Dates: start: 20110128
  8. ALBUTEROL [Concomitant]
     Indication: DYSPNOEA
     Dosage: UNK, AS NEEDED
  9. WARFARIN [Concomitant]
     Dosage: 4 MG, UNK
  10. CLARITIN-D [Concomitant]
     Indication: HYPERSENSITIVITY
     Dosage: UNK
  11. EVISTA [Concomitant]
     Dosage: 60 MG, UNK
  12. LASIX [Concomitant]
     Dosage: 40 MG, 2X/DAY
  13. FENTANYL [Concomitant]
     Dosage: 12.5 MG, UNK
  14. LANTUS [Concomitant]
     Dosage: UNK
  15. IPRATROPIUM [Concomitant]
     Indication: DYSPNOEA
     Dosage: UNK, AS NEEDED

REACTIONS (2)
  - NIGHTMARE [None]
  - HALLUCINATION [None]
